FAERS Safety Report 6185489-2 (Version None)
Quarter: 2009Q2

REPORT INFORMATION
  Report Type: 
  Country: None (occurrence: None)
  Receive Date: 20090507
  Receipt Date: 20090427
  Transmission Date: 20091009
  Serious: Yes (Death, Other)
  Sender: FDA-Public Use
  Company Number: A-US2007-14981

PATIENT
  Age: 70 Year
  Sex: Male

DRUGS (5)
  1. VENTAVIS [Suspect]
     Indication: PULMONARY HYPERTENSION
     Dosage: 2.5 UG, QID, RESPIRATORY
     Route: 055
     Dates: start: 20070308, end: 20070308
  2. TIOTROPIUM BROMIDE (TIOTROPIUM BROMIDE) [Concomitant]
  3. ACETYLCYSTEINE [Concomitant]
  4. CEFACLOR MONOHYDRATE (CEFACLOR MONOHYDRATE) [Concomitant]
  5. CECLOR [Concomitant]

REACTIONS (10)
  - APPARENT DEATH [None]
  - ARRHYTHMIA [None]
  - CHEST DISCOMFORT [None]
  - DYSPNOEA [None]
  - LOSS OF CONSCIOUSNESS [None]
  - MYOCARDIAL INFARCTION [None]
  - OFF LABEL USE [None]
  - PNEUMOTHORAX [None]
  - PULMONARY EMBOLISM [None]
  - RESUSCITATION [None]
